FAERS Safety Report 10051316 (Version 1)
Quarter: 2014Q2

REPORT INFORMATION
  Report Type: Spontaneous
  Country: US (occurrence: US)
  Receive Date: 20140401
  Receipt Date: 20140401
  Transmission Date: 20141212
  Serious: No
  Sender: FDA-Public Use
  Company Number: US-PFIZER INC-2014087594

PATIENT
  Sex: Male

DRUGS (4)
  1. TIKOSYN [Suspect]
     Indication: CARDIAC FIBRILLATION
     Dosage: 500 UG, 2X/DAY (500 MCG BID)
  2. LASIX [Suspect]
     Indication: CARDIAC FIBRILLATION
     Dosage: UNK
  3. LASIX [Suspect]
     Indication: OEDEMA
  4. METOLAZONE [Concomitant]
     Indication: CARDIAC FIBRILLATION
     Dosage: UNK

REACTIONS (1)
  - Oedema [Unknown]
